FAERS Safety Report 24435319 (Version 1)
Quarter: 2024Q4

REPORT INFORMATION
  Report Type: Spontaneous
  Country: CN (occurrence: CN)
  Receive Date: 20241015
  Receipt Date: 20241015
  Transmission Date: 20250115
  Serious: Yes (Other)
  Sender: BEIGENE
  Company Number: CN-BEIGENE-BGN-2024-016107

PATIENT

DRUGS (3)
  1. TISLELIZUMAB [Suspect]
     Active Substance: TISLELIZUMAB
     Indication: Nasopharyngeal cancer
     Dosage: 2 BOTTLES
     Route: 041
     Dates: start: 20240710
  2. CISPLATIN [Suspect]
     Active Substance: CISPLATIN
     Indication: Nasopharyngeal cancer
     Dosage: 70 MILLIGRAM
  3. PACLITAXEL [Concomitant]
     Active Substance: PACLITAXEL
     Indication: Nasopharyngeal cancer
     Dosage: 0.45 GRAM

REACTIONS (1)
  - Hyperbilirubinaemia [Recovering/Resolving]

NARRATIVE: CASE EVENT DATE: 20240730
